FAERS Safety Report 6434060-3 (Version None)
Quarter: 2009Q4

REPORT INFORMATION
  Report Type: 
  Country: None (occurrence: None)
  Receive Date: 20091109
  Receipt Date: 20091109
  Transmission Date: 20100525
  Serious: Yes (Hospitalization)
  Sender: FDA-Public Use
  Company Number: None

PATIENT
  Sex: Female
  Weight: 79.3795 kg

DRUGS (3)
  1. RANIBIZUMAB 10 MG/ML, 0.3 ML/VIAL GENENTECH [Suspect]
     Indication: MACULAR DEGENERATION
     Dosage: 10 MG/ML, 0.3 ML/VIAL EVERY 4 WKS IV
     Route: 042
     Dates: start: 20090818
  2. RANIBIZUMAB 10 MG/ML, 0.3 ML/VIAL GENENTECH [Suspect]
     Indication: MACULAR DEGENERATION
     Dosage: 10 MG/ML, 0.3 ML/VIAL EVERY 4 WKS IV
     Route: 042
     Dates: start: 20090917
  3. RANIBIZUMAB 10 MG/ML, 0.3 ML/VIAL GENENTECH [Suspect]
     Indication: MACULAR DEGENERATION
     Dosage: 10 MG/ML, 0.3 ML/VIAL EVERY 4 WKS IV
     Route: 042
     Dates: start: 20091015

REACTIONS (1)
  - MYOCARDIAL INFARCTION [None]
